FAERS Safety Report 11745235 (Version 1)
Quarter: 2015Q4

REPORT INFORMATION
  Report Type: Spontaneous
  Country: US (occurrence: US)
  Receive Date: 20151117
  Receipt Date: 20151117
  Transmission Date: 20160304
  Serious: No
  Sender: FDA-Public Use
  Company Number: US-SUN PHARMACEUTICAL INDUSTRIES LTD-2015US-104415

PATIENT
  Sex: Female

DRUGS (1)
  1. PHENTERMINE. [Suspect]
     Active Substance: PHENTERMINE
     Indication: WEIGHT DECREASED
     Dosage: ? OF A TAB 1 TIME/DAY, UP TO 2 ? OF A TAB/DAY, 1 FULL TAB/ DAY, UP TO 2 TABS/DAY
     Route: 065
     Dates: start: 2015

REACTIONS (2)
  - Wrong technique in product usage process [Unknown]
  - Drug ineffective [Unknown]

NARRATIVE: CASE EVENT DATE: 2015
